FAERS Safety Report 4718969-4 (Version None)
Quarter: 2005Q3

REPORT INFORMATION
  Report Type: 
  Country: None (occurrence: None)
  Receive Date: 20050719
  Receipt Date: 20050704
  Transmission Date: 20060218
  Serious: Yes (Hospitalization)
  Sender: FDA-Public Use
  Company Number: FR_050706769

PATIENT
  Age: 83 Year
  Sex: Female

DRUGS (3)
  1. ZYPREXA [Suspect]
     Indication: AGITATION
     Dosage: 5 MG/2 DAY
     Dates: start: 20050623, end: 20050625
  2. DIURETIC [Concomitant]
  3. ANALGESIC [Concomitant]

REACTIONS (3)
  - BLOOD CREATINE PHOSPHOKINASE INCREASED [None]
  - CATATONIA [None]
  - HYPERTHERMIA [None]
